FAERS Safety Report 5232686-6 (Version None)
Quarter: 2007Q1

REPORT INFORMATION
  Report Type: 
  Country: None (occurrence: None)
  Receive Date: 20070207
  Receipt Date: 20070130
  Transmission Date: 20070707
  Serious: Yes (Hospitalization, Other)
  Sender: FDA-Public Use
  Company Number: 2007PK00174

PATIENT
  Age: 502 Month
  Sex: Female
  Weight: 91 kg

DRUGS (3)
  1. ARIMIDEX [Suspect]
     Indication: BREAST CANCER
     Route: 048
     Dates: start: 20030115, end: 20060126
  2. ZOLEDRONIC ACID [Suspect]
     Indication: BREAST CANCER
     Route: 059
     Dates: start: 20030115, end: 20060126
  3. ZOLADEX [Concomitant]
     Indication: BREAST CANCER
     Route: 058
     Dates: start: 20030115, end: 20060126

REACTIONS (5)
  - CERVICITIS [None]
  - DYSMENORRHOEA [None]
  - ENDOMETRIAL HYPERPLASIA [None]
  - MENORRHAGIA [None]
  - UTERINE POLYP [None]
